FAERS Safety Report 6091076-7 (Version None)
Quarter: 2009Q1

REPORT INFORMATION
  Report Type: 
  Country: None (occurrence: None)
  Receive Date: 20090225
  Receipt Date: 20090213
  Transmission Date: 20090719
  Serious: Yes (Other)
  Sender: FDA-Public Use
  Company Number: JP-PFIZER INC-2009164093

PATIENT

DRUGS (6)
  1. ZITHROMAX [Suspect]
     Indication: BRONCHITIS
     Dosage: 500 MG, 1X/DAY
     Route: 048
     Dates: start: 20090116, end: 20090118
  2. DIOVANE [Concomitant]
     Indication: HYPERTENSION
     Route: 048
  3. ALLOPURINOL [Concomitant]
     Indication: HYPERURICAEMIA
     Route: 048
  4. MUCODYNE [Concomitant]
     Route: 048
     Dates: start: 20090116, end: 20090119
  5. ALL OTHER NON-THERAPEUTIC PRODUCTS [Concomitant]
  6. LOXONIN [Concomitant]
     Route: 048
     Dates: start: 20090116, end: 20090119

REACTIONS (1)
  - MELAENA [None]
